FAERS Safety Report 4721726-6 (Version None)
Quarter: 2005Q3

REPORT INFORMATION
  Report Type: 
  Country: None (occurrence: None)
  Receive Date: 20050721
  Receipt Date: 20050316
  Transmission Date: 20060218
  Serious: No
  Sender: FDA-Public Use
  Company Number: US-BRISTOL-MYERS SQUIBB COMPANY-12901500

PATIENT
  Sex: Female

DRUGS (1)
  1. COUMADIN [Suspect]
     Indication: ATRIAL FIBRILLATION
     Dosage: 3 MG DAILY ON TUES, THURS, AND SAT.  1.5 MG DAILY ON MON, WED, AND FRI.
     Route: 048

REACTIONS (3)
  - ALOPECIA [None]
  - CONTUSION [None]
  - FATIGUE [None]
